FAERS Safety Report 17276301 (Version 3)
Quarter: 2020Q1

REPORT INFORMATION
  Report Type: Spontaneous
  Country: US (occurrence: US)
  Receive Date: 20200116
  Receipt Date: 20200323
  Transmission Date: 20200409
  Serious: Yes (Hospitalization, Other)
  Sender: FDA-Public Use
  Company Number: US-HIKMA PHARMACEUTICALS USA INC.-US-H14001-20-00062

PATIENT
  Age: 68 Year
  Sex: Female
  Weight: 95.2 kg

DRUGS (10)
  1. PREDNISONE. [Suspect]
     Active Substance: PREDNISONE
     Route: 065
     Dates: start: 2019
  2. CORTISONE [Suspect]
     Active Substance: CORTISONE
     Indication: PRODUCT USED FOR UNKNOWN INDICATION
     Route: 065
  3. IRON [Concomitant]
     Active Substance: IRON
     Indication: SUPPLEMENTATION THERAPY
     Route: 065
  4. PROZAC [Concomitant]
     Active Substance: FLUOXETINE HYDROCHLORIDE
     Indication: PRODUCT USED FOR UNKNOWN INDICATION
     Route: 065
  5. FIRDAPSE [Suspect]
     Active Substance: AMIFAMPRIDINE
     Route: 048
     Dates: start: 2019
  6. FIRDAPSE [Suspect]
     Active Substance: AMIFAMPRIDINE
     Indication: MYASTHENIC SYNDROME
     Route: 048
     Dates: start: 2019, end: 2019
  7. PREDNISONE. [Suspect]
     Active Substance: PREDNISONE
     Indication: PRODUCT USED FOR UNKNOWN INDICATION
     Route: 065
     Dates: start: 2019, end: 2019
  8. LANSOPRAZOLE. [Concomitant]
     Active Substance: LANSOPRAZOLE
     Indication: PRODUCT USED FOR UNKNOWN INDICATION
     Route: 065
  9. VITAMIN D [Concomitant]
     Active Substance: VITAMIN D NOS
     Indication: SUPPLEMENTATION THERAPY
     Route: 065
  10. CALCIUM [Concomitant]
     Active Substance: CALCIUM
     Indication: SUPPLEMENTATION THERAPY
     Route: 065

REACTIONS (19)
  - Escherichia infection [Recovering/Resolving]
  - Septic shock [Recovering/Resolving]
  - Bronchitis [Recovering/Resolving]
  - Osteomyelitis [Recovering/Resolving]
  - Escherichia bacteraemia [Recovering/Resolving]
  - Acute sinusitis [Recovering/Resolving]
  - Phlebolith [Recovering/Resolving]
  - Rash [Recovering/Resolving]
  - Diverticulum [Recovering/Resolving]
  - Atelectasis [Recovering/Resolving]
  - Normocytic anaemia [Recovering/Resolving]
  - Arteriosclerosis [Recovering/Resolving]
  - Colitis [Recovering/Resolving]
  - Joint effusion [Recovering/Resolving]
  - Pneumonia [Recovering/Resolving]
  - Spinal stenosis [Recovering/Resolving]
  - Malnutrition [Recovering/Resolving]
  - Fall [Unknown]
  - Urinary retention [Recovering/Resolving]

NARRATIVE: CASE EVENT DATE: 20191114
